FAERS Safety Report 26144588 (Version 1)
Quarter: 2025Q4

REPORT INFORMATION
  Report Type: Report from Study
  Country: CO (occurrence: CO)
  Receive Date: 20251211
  Receipt Date: 20251211
  Transmission Date: 20260119
  Serious: No
  Sender: PFIZER
  Company Number: CO-PFIZER INC-PV202500142384

PATIENT
  Sex: Female

DRUGS (1)
  1. GENOTROPIN [Suspect]
     Active Substance: SOMATROPIN
     Dosage: 1.2 MG, DAILY

REACTIONS (2)
  - Device physical property issue [Unknown]
  - Device delivery system issue [Unknown]
